FAERS Safety Report 8174590-X (Version None)
Quarter: 2012Q1

REPORT INFORMATION
  Report Type: 
  Country: None (occurrence: None)
  Receive Date: 20120229
  Receipt Date: 20120223
  Transmission Date: 20120608
  Serious: No
  Sender: FDA-Public Use
  Company Number: US-PFIZER INC-2012032477

PATIENT
  Sex: Female
  Weight: 118 kg

DRUGS (3)
  1. CRESTOR [Concomitant]
     Dosage: UNK
  2. KEPPRA [Concomitant]
     Dosage: UNK
  3. CHANTIX [Suspect]
     Indication: SMOKING CESSATION THERAPY
     Dosage: 0.5 MG, 1X/DAY
     Route: 048
     Dates: start: 20120130

REACTIONS (1)
  - WEIGHT INCREASED [None]
